FAERS Safety Report 11845773 (Version 1)
Quarter: 2015Q4

REPORT INFORMATION
  Report Type: Spontaneous
  Country: CA (occurrence: CA)
  Receive Date: 20151217
  Receipt Date: 20151217
  Transmission Date: 20160305
  Serious: Yes (Other)
  Sender: FDA-Public Use
  Company Number: CA-009507513-1512CAN008740

PATIENT
  Age: 55 Year
  Sex: Male
  Weight: 73 kg

DRUGS (3)
  1. RIVASA [Concomitant]
     Active Substance: ASPIRIN
  2. PROSCAR [Suspect]
     Active Substance: FINASTERIDE
     Dosage: 5 MG, QD
     Route: 065
  3. LEVITRA [Concomitant]
     Active Substance: VARDENAFIL HYDROCHLORIDE TRIHYDRATE

REACTIONS (4)
  - Crying [Recovered/Resolved]
  - Depression [Recovered/Resolved]
  - Self-injurious ideation [Recovered/Resolved]
  - Apathy [Recovered/Resolved]
